APPROVED DRUG PRODUCT: MEDIGESIC PLUS
Active Ingredient: ACETAMINOPHEN; BUTALBITAL; CAFFEINE
Strength: 325MG;50MG;40MG
Dosage Form/Route: CAPSULE;ORAL
Application: A089115 | Product #001
Applicant: US CHEMICAL MARKETING GROUP INC
Approved: Jan 14, 1986 | RLD: No | RS: No | Type: DISCN